FAERS Safety Report 10747442 (Version 1)
Quarter: 2015Q1

REPORT INFORMATION
  Report Type: Report from Study
  Country: BR (occurrence: BR)
  Receive Date: 20150129
  Receipt Date: 20150129
  Transmission Date: 20150721
  Serious: Yes (Hospitalization, Other)
  Sender: FDA-Public Use
  Company Number: BR-BIOGENIDEC-2014BI044979

PATIENT
  Age: 50 Year
  Sex: Female

DRUGS (6)
  1. CLONAZEPAM. [Concomitant]
     Active Substance: CLONAZEPAM
  2. AMITRIPTYLINE [Concomitant]
     Active Substance: AMITRIPTYLINE
  3. SIMVASTATIN. [Concomitant]
     Active Substance: SIMVASTATIN
     Route: 048
     Dates: start: 2011
  4. ACETYLSALICYLIC ACID [Concomitant]
     Active Substance: ASPIRIN
     Indication: CEREBROVASCULAR ACCIDENT
     Route: 048
     Dates: start: 2011
  5. PARACETAMOL [Concomitant]
     Active Substance: ACETAMINOPHEN
     Indication: PAIN
     Route: 048
     Dates: start: 2012
  6. AVONEX [Suspect]
     Active Substance: INTERFERON BETA-1A
     Indication: MULTIPLE SCLEROSIS
     Route: 030
     Dates: start: 20130210

REACTIONS (12)
  - Menorrhagia [Not Recovered/Not Resolved]
  - Dizziness [Unknown]
  - Iron deficiency anaemia [Not Recovered/Not Resolved]
  - Lack of injection site rotation [Unknown]
  - Pain in jaw [Not Recovered/Not Resolved]
  - Hypotension [Unknown]
  - Urinary tract infection [Recovered/Resolved]
  - Hypoaesthesia [Unknown]
  - Multiple sclerosis relapse [Not Recovered/Not Resolved]
  - Labyrinthitis [Unknown]
  - Gingivitis [Not Recovered/Not Resolved]
  - Sensory loss [Unknown]

NARRATIVE: CASE EVENT DATE: 201404
